FAERS Safety Report 9203414 (Version 1)
Quarter: 2013Q2

REPORT INFORMATION
  Report Type: Spontaneous
  Country: US (occurrence: None)
  Receive Date: 20130402
  Receipt Date: 20130402
  Transmission Date: 20140414
  Serious: Yes (Hospitalization)
  Sender: FDA-Public Use
  Company Number: None

PATIENT
  Age: 81 Year
  Sex: Male
  Weight: 115 kg

DRUGS (2)
  1. WARFARIN [Suspect]
     Indication: ATRIAL FIBRILLATION
     Dates: start: 20100422, end: 20130320
  2. ENOXAPARIN [Suspect]
     Dates: start: 20130326, end: 20130326

REACTIONS (5)
  - Haemorrhage [None]
  - International normalised ratio increased [None]
  - Haematoma [None]
  - Haematuria [None]
  - Haematemesis [None]
